FAERS Safety Report 24077565 (Version 1)
Quarter: 2024Q3

REPORT INFORMATION
  Report Type: Spontaneous
  Country: GB (occurrence: GB)
  Receive Date: 20240711
  Receipt Date: 20240711
  Transmission Date: 20241017
  Serious: Yes (Life-Threatening, Other)
  Sender: AUROBINDO
  Company Number: GB-MHRA-TPP15329347C8328081YC1719917328130

PATIENT
  Age: 56 Year
  Sex: Female
  Weight: 85 kg

DRUGS (7)
  1. CLARITHROMYCIN [Suspect]
     Active Substance: CLARITHROMYCIN
     Indication: Ill-defined disorder
     Dosage: 500 MILLIGRAM, TWO TIMES A DAY (ADULT DOSE: TAKE ONE TABLET TWICE A DAY FOR SEVEN DAYS)
     Route: 065
     Dates: start: 20240628
  2. PROPRANOLOL [Concomitant]
     Active Substance: PROPRANOLOL HYDROCHLORIDE
     Indication: Ill-defined disorder
     Dosage: 1 DOSAGE FORM, 3 TIMES A DAY (TAKE ONE 3 TIMES/DAY)
     Route: 065
     Dates: start: 20211019
  3. PAROXETINE [Concomitant]
     Active Substance: PAROXETINE
     Indication: Ill-defined disorder
     Dosage: 1 DOSAGE FORM, ONCE A DAY (1 DAILY)
     Route: 065
     Dates: start: 20230308
  4. SALT [Concomitant]
     Active Substance: SODIUM CHLORIDE
     Indication: Ill-defined disorder
     Dosage: USE AS DIRECTED
     Route: 065
     Dates: start: 20230308
  5. SOLIFENACIN [Concomitant]
     Active Substance: SOLIFENACIN
     Indication: Bladder disorder
     Dosage: 1 DOSAGE FORM, ONCE A DAY (TAKE ONE TABLET EACH DAY FOR BLADDER PROBLEMS)
     Route: 065
     Dates: start: 20240419
  6. DIAZEPAM [Concomitant]
     Active Substance: DIAZEPAM
     Indication: Ill-defined disorder
     Dosage: 1 DOSAGE FORM (TAKE ONE SPARINGLY - UP TO TO BE TAKEN THREE TI...)
     Route: 065
     Dates: start: 20240617, end: 20240622
  7. EPIPEN [Concomitant]
     Active Substance: EPINEPHRINE
     Indication: Ill-defined disorder
     Dosage: UNK (FOR PATIENTS WEIGHING GREATER THAN 25KG. USE AS...)
     Route: 065
     Dates: start: 20240702

REACTIONS (3)
  - Swollen tongue [Recovering/Resolving]
  - Lip swelling [Unknown]
  - Pharyngeal swelling [Unknown]
